FAERS Safety Report 9662165 (Version 3)
Quarter: 2014Q2

REPORT INFORMATION
  Report Type: Spontaneous
  Country: US (occurrence: US)
  Receive Date: 20131031
  Receipt Date: 20140418
  Transmission Date: 20141212
  Serious: No
  Sender: FDA-Public Use
  Company Number: US-PURDUE-USA-2011-0066345

PATIENT
  Age: 63 Year
  Sex: Female
  Weight: 78.5 kg

DRUGS (13)
  1. OXYCONTIN (NDA 22-272) [Suspect]
     Indication: PAIN
     Dosage: 80 MG, Q12H
     Dates: start: 201008, end: 20110501
  2. OXYCONTIN (NDA 22-272) [Suspect]
     Indication: ARACHNOIDITIS
  3. OXYCONTIN (NDA 22-272) [Suspect]
     Indication: SURGERY
  4. OXYCONTIN (NDA 22-272) [Suspect]
     Indication: AUTOIMMUNE DISORDER
  5. OXYCODONE HYDROCHLORIDE (SIMILAR TO NDA 22-272) [Concomitant]
     Indication: BREAKTHROUGH PAIN
     Dosage: 30 MG, Q6H
  6. NEXIUM                             /01479302/ [Concomitant]
     Indication: GASTROOESOPHAGEAL REFLUX DISEASE
     Dosage: 40 MG, DAILY
  7. NEXIUM                             /01479302/ [Concomitant]
     Indication: ULCER
  8. XANAX [Concomitant]
     Indication: PRODUCT USED FOR UNKNOWN INDICATION
     Dosage: .5 MG, TID
  9. PREMARIN [Concomitant]
     Indication: PRODUCT USED FOR UNKNOWN INDICATION
     Dosage: .9 UNK, DAILY
  10. KLOR-CON M15 [Concomitant]
     Indication: PRODUCT USED FOR UNKNOWN INDICATION
     Dosage: 10 MG, SEE TEXT
  11. TOPAMAX [Concomitant]
     Indication: PRODUCT USED FOR UNKNOWN INDICATION
     Dosage: 75 MG, UNK
  12. TOPAMAX [Concomitant]
     Dosage: 100 MG, UNK
  13. BUMEX [Concomitant]
     Indication: PRODUCT USED FOR UNKNOWN INDICATION
     Dosage: .50 UNK, UNK

REACTIONS (17)
  - Drug withdrawal syndrome [Recovered/Resolved]
  - Colitis [Recovered/Resolved]
  - Pain [Unknown]
  - Yawning [Recovered/Resolved]
  - Rhinorrhoea [Recovered/Resolved]
  - Drug ineffective [Recovered/Resolved]
  - Breakthrough pain [Unknown]
  - Nausea [Unknown]
  - Lacrimation increased [Recovered/Resolved]
  - Headache [Recovered/Resolved]
  - Malaise [Unknown]
  - Feeling cold [Recovered/Resolved]
  - Insomnia [Recovered/Resolved]
  - Abdominal pain upper [Recovered/Resolved]
  - Somnolence [Recovered/Resolved]
  - Inadequate analgesia [Unknown]
  - Unevaluable event [Unknown]
